FAERS Safety Report 15858077 (Version 4)
Quarter: 2019Q2

REPORT INFORMATION
  Report Type: Spontaneous
  Country: US (occurrence: US)
  Receive Date: 20190123
  Receipt Date: 20190409
  Transmission Date: 20190711
  Serious: Yes (Hospitalization, Other)
  Sender: FDA-Public Use
  Company Number: US-BTG-201900017

PATIENT
  Age: 73 Year
  Sex: Female

DRUGS (7)
  1. HCTZ [Concomitant]
     Active Substance: HYDROCHLOROTHIAZIDE
     Indication: SWELLING
     Dosage: AS NEEDED (PRN)
     Route: 065
  2. VARITHENA [Suspect]
     Active Substance: POLIDOCANOL
     Indication: PERIPHERAL VENOUS DISEASE
     Route: 065
     Dates: start: 20181221
  3. SOTRADECOL [Interacting]
     Active Substance: SODIUM TETRADECYL SULFATE
     Indication: PERIPHERAL VENOUS DISEASE
     Route: 065
     Dates: start: 20181221
  4. ALPRAZOLAM. [Concomitant]
     Active Substance: ALPRAZOLAM
     Indication: INSOMNIA
     Dosage: EVERY NIGHT AT BED TIME AS NEEDED (QHS PRN)
     Route: 065
  5. OMEPRAZOLE DR [Concomitant]
     Active Substance: OMEPRAZOLE
     Indication: PEPTIC ULCER
     Dosage: 1 DOSE ORALLY EVERY DAY (1 PO QD)
     Route: 048
  6. VARITHENA [Suspect]
     Active Substance: POLIDOCANOL
     Indication: PERIPHERAL VENOUS DISEASE
     Route: 065
     Dates: start: 20181231, end: 20181231
  7. SOTRADECOL [Interacting]
     Active Substance: SODIUM TETRADECYL SULFATE
     Indication: PERIPHERAL VENOUS DISEASE
     Route: 065
     Dates: start: 20181231

REACTIONS (11)
  - Lethargy [Recovered/Resolved]
  - Chest discomfort [Recovered/Resolved]
  - Dizziness [Recovered/Resolved]
  - Dizziness [Recovered/Resolved]
  - Chest pain [Recovered/Resolved]
  - Asthenia [Recovered/Resolved]
  - Family stress [Not Recovered/Not Resolved]
  - Chest discomfort [Recovered/Resolved]
  - Angina pectoris [Recovered/Resolved]
  - Treatment noncompliance [Unknown]
  - Fatigue [Not Recovered/Not Resolved]

NARRATIVE: CASE EVENT DATE: 20181231
